FAERS Safety Report 7958375-2 (Version None)
Quarter: 2011Q4

REPORT INFORMATION
  Report Type: 
  Country: None (occurrence: None)
  Receive Date: 20111205
  Receipt Date: 20111130
  Transmission Date: 20120403
  Serious: Yes (Hospitalization)
  Sender: FDA-Public Use
  Company Number: DE-AMGEN-UK284119

PATIENT
  Age: 63 Year
  Sex: Male

DRUGS (12)
  1. CISPLATIN [Concomitant]
     Dosage: 150 MG, UNK
     Route: 042
     Dates: start: 20080519
  2. NIFEDIPINE [Concomitant]
     Dosage: UNK UNK, UNK
     Route: 048
     Dates: start: 20080519
  3. LORMETAZEPAM [Concomitant]
     Dosage: UNK UNK, UNK
     Route: 048
     Dates: start: 20080513
  4. PREGABALIN [Concomitant]
     Dosage: 150 MG, UNK
     Route: 048
  5. SIMVASTATIN [Concomitant]
     Dosage: 10 MG, UNK
     Dates: start: 20070401
  6. ENALAPRIL MALEATE [Concomitant]
     Dosage: UNK UNK, UNK
     Route: 048
     Dates: start: 20060401
  7. DIPYRONE TAB [Concomitant]
     Dosage: UNK UNK, UNK
     Route: 048
     Dates: start: 20080514
  8. OMEPRAZOLE [Concomitant]
     Dosage: 20 MG, UNK
     Route: 048
     Dates: start: 20080416, end: 20080531
  9. EMEND [Concomitant]
     Dosage: 125 MG, UNK
     Dates: start: 20080519, end: 20080519
  10. PANITUMUMAB [Suspect]
     Indication: SQUAMOUS CELL CARCINOMA
     Dosage: 765 MG, UNK
     Route: 042
     Dates: start: 20080519, end: 20080611
  11. PREDNISOLONE [Concomitant]
     Dosage: UNK UNK, QCYCLE
     Route: 048
     Dates: start: 20080425
  12. FORTECORTIN [Concomitant]
     Dosage: 8 MG, UNK
     Dates: start: 20080519, end: 20080519

REACTIONS (2)
  - GLOSSITIS [None]
  - MUCOSAL INFLAMMATION [None]
